FAERS Safety Report 8738146 (Version 8)
Quarter: 2014Q3

REPORT INFORMATION
  Report Type: Spontaneous
  Country: US (occurrence: US)
  Receive Date: 20120823
  Receipt Date: 20140714
  Transmission Date: 20150326
  Serious: Yes (Hospitalization, Other)
  Sender: FDA-Public Use
  Company Number: US-009507513-1208USA005657

PATIENT
  Sex: Female

DRUGS (3)
  1. FOSAMAX [Suspect]
     Active Substance: ALENDRONATE SODIUM
     Dosage: 70 MG, UNK
     Route: 048
     Dates: end: 20081003
  2. ALENDRONATE SODIUM. [Suspect]
     Active Substance: ALENDRONATE SODIUM
     Indication: OSTEOPOROSIS
     Dosage: 70 MG, UNK
     Route: 048
     Dates: start: 20081103, end: 201101
  3. FOSAMAX [Suspect]
     Active Substance: ALENDRONATE SODIUM
     Indication: OSTEOPOROSIS
     Dosage: 10 MG, UNK
     Route: 048
     Dates: start: 19990726, end: 19991127

REACTIONS (7)
  - Thyroidectomy [Unknown]
  - Hysterectomy [Unknown]
  - Femur fracture [Recovering/Resolving]
  - Cervix carcinoma [Unknown]
  - Hand fracture [Unknown]
  - Intramedullary rod insertion [Unknown]
  - Patella fracture [Unknown]

NARRATIVE: CASE EVENT DATE: 20060904
